FAERS Safety Report 4662555-1 (Version None)
Quarter: 2005Q3

REPORT INFORMATION
  Report Type: 
  Country: None (occurrence: None)
  Receive Date: 20050516
  Receipt Date: 20050516
  Transmission Date: 20060218
  Serious: Yes (Other)
  Sender: FDA-Public Use
  Company Number: None

PATIENT
  Age: 44 Year
  Sex: Female

DRUGS (1)
  1. AMITRIPTYLINE HCL [Suspect]
     Dates: start: 19931021, end: 20050205

REACTIONS (9)
  - ALANINE AMINOTRANSFERASE INCREASED [None]
  - ASPARTATE AMINOTRANSFERASE INCREASED [None]
  - BLOOD ALKALINE PHOSPHATASE INCREASED [None]
  - COUGH [None]
  - HAEMODIALYSIS [None]
  - HEPATIC TRAUMA [None]
  - PYREXIA [None]
  - RENAL FAILURE CHRONIC [None]
  - URINARY TRACT INFECTION [None]
